FAERS Safety Report 12749833 (Version 2)
Quarter: 2016Q4

REPORT INFORMATION
  Report Type: Spontaneous
  Country: KR (occurrence: KR)
  Receive Date: 20160916
  Receipt Date: 20161028
  Transmission Date: 20170207
  Serious: Yes (Life-Threatening, Other)
  Sender: FDA-Public Use
  Company Number: KR-GLAXOSMITHKLINE-KR2016135153

PATIENT
  Age: 63 Year
  Sex: Male

DRUGS (19)
  1. ROPINIROLE. [Suspect]
     Active Substance: ROPINIROLE
  2. TIANEPTINE [Suspect]
     Active Substance: TIANEPTINE
  3. METHYLPHENIDATE HYDROCHLORIDE. [Suspect]
     Active Substance: METHYLPHENIDATE HYDROCHLORIDE
     Dosage: 20 MG, UNK
  4. AMANTADINE [Suspect]
     Active Substance: AMANTADINE
  5. BROMOCRIPTINE [Suspect]
     Active Substance: BROMOCRIPTINE
     Dosage: 2.5 MG, UNK
  6. ROPINIROLE. [Suspect]
     Active Substance: ROPINIROLE
     Dosage: 0.75 MG, UNK
  7. DONEPEZIL. [Suspect]
     Active Substance: DONEPEZIL
  8. ROPINIROLE. [Suspect]
     Active Substance: ROPINIROLE
  9. DONEPEZIL. [Suspect]
     Active Substance: DONEPEZIL
  10. METHYLPHENIDATE HYDROCHLORIDE. [Suspect]
     Active Substance: METHYLPHENIDATE HYDROCHLORIDE
  11. BROMOCRIPTINE [Suspect]
     Active Substance: BROMOCRIPTINE
  12. ROPINIROLE. [Suspect]
     Active Substance: ROPINIROLE
  13. APO LEVOCARB [Suspect]
     Active Substance: CARBIDOPA\LEVODOPA
  14. AMANTADINE [Suspect]
     Active Substance: AMANTADINE
     Dosage: 300 MG, UNK
  15. VENLAFAXINE [Suspect]
     Active Substance: VENLAFAXINE HYDROCHLORIDE
     Dosage: 37.5 MG, UNK
  16. TIANEPTINE [Suspect]
     Active Substance: TIANEPTINE
     Dosage: 37.5 MG, UNK
  17. ROPINIROLE. [Suspect]
     Active Substance: ROPINIROLE
     Dosage: 0.25 MG, UNK
  18. ROPINIROLE. [Suspect]
     Active Substance: ROPINIROLE
     Dosage: 0.625 MG, UNK
  19. VENLAFAXINE [Suspect]
     Active Substance: VENLAFAXINE HYDROCHLORIDE

REACTIONS (1)
  - Serotonin syndrome [Recovered/Resolved]
